FAERS Safety Report 7954169-2 (Version None)
Quarter: 2011Q4

REPORT INFORMATION
  Report Type: 
  Country: None (occurrence: None)
  Receive Date: 20111129
  Receipt Date: 20111117
  Transmission Date: 20120403
  Serious: Yes (Death)
  Sender: FDA-Public Use
  Company Number: 1113860

PATIENT
  Age: 61 Year
  Sex: Female

DRUGS (3)
  1. (OTHER CHEMOTHERAPEUTICS) [Suspect]
     Indication: B-CELL LYMPHOMA
     Dosage: NOT REPORTED, UNKNOWN, UNKNOWN
  2. CYCLOPHOSPHAMIDE [Suspect]
     Indication: B-CELL LYMPHOMA
     Dosage: NOT REPORTED, UNKNOWN, UNKNOWN
  3. FLUDARABINE PHOSPHATE [Suspect]
     Indication: B-CELL LYMPHOMA
     Dosage: NOT REPORTED, UNKNOWN, UNKNOWN

REACTIONS (11)
  - WHITE BLOOD CELL COUNT INCREASED [None]
  - BLOOD UREA INCREASED [None]
  - PROTEIN TOTAL DECREASED [None]
  - BLOOD ALBUMIN DECREASED [None]
  - PLEURAL EFFUSION [None]
  - CYTOMEGALOVIRUS COLITIS [None]
  - COMPLICATIONS OF TRANSPLANT SURGERY [None]
  - CYSTITIS HAEMORRHAGIC [None]
  - BLOOD CREATINE INCREASED [None]
  - CYTOMEGALOVIRUS INFECTION [None]
  - HYPERBILIRUBINAEMIA [None]
